FAERS Safety Report 17305865 (Version 2)
Quarter: 2020Q1

REPORT INFORMATION
  Report Type: Spontaneous
  Country: IT (occurrence: IT)
  Receive Date: 20200123
  Receipt Date: 20200128
  Transmission Date: 20200409
  Serious: Yes (Hospitalization, Other)
  Sender: FDA-Public Use
  Company Number: IT-MYLANLABS-2020M1006502

PATIENT
  Age: 58 Year
  Sex: Male

DRUGS (4)
  1. EVEROLIMUS. [Suspect]
     Active Substance: EVEROLIMUS
     Indication: IMMUNOSUPPRESSANT DRUG THERAPY
  2. EVEROLIMUS. [Suspect]
     Active Substance: EVEROLIMUS
     Indication: RENAL TRANSPLANT
     Dosage: 0.75 MG, Q12H
     Route: 065
  3. TACROLIMUS. [Suspect]
     Active Substance: TACROLIMUS
     Indication: RENAL TRANSPLANT
     Dosage: 2 MG, ONCE/SINGLE
  4. TACROLIMUS. [Suspect]
     Active Substance: TACROLIMUS
     Indication: IMMUNOSUPPRESSANT DRUG THERAPY

REACTIONS (10)
  - Skin tightness [Unknown]
  - Limb discomfort [Unknown]
  - Hypertension [Unknown]
  - Burning sensation [Unknown]
  - Peripheral swelling [Unknown]
  - Gingival hypertrophy [Unknown]
  - Mobility decreased [Unknown]
  - Lymphoedema [Not Recovered/Not Resolved]
  - Dyslipidaemia [Unknown]
  - Glucose tolerance impaired [Unknown]
